FAERS Safety Report 16680270 (Version 1)
Quarter: 2019Q3

REPORT INFORMATION
  Report Type: Report from Study
  Country: IT (occurrence: IT)
  Receive Date: 20190807
  Receipt Date: 20190807
  Transmission Date: 20191004
  Serious: Yes (Hospitalization)
  Sender: FDA-Public Use
  Company Number: PHHY2019IT182598

PATIENT
  Age: 72 Year
  Sex: Male
  Weight: 81 kg

DRUGS (2)
  1. LENVATINIB [Suspect]
     Active Substance: LENVATINIB
     Indication: RENAL CELL CARCINOMA
     Dosage: 18 MG, QD
     Route: 048
     Dates: start: 20190626, end: 20190708
  2. EVEROLIMUS. [Suspect]
     Active Substance: EVEROLIMUS
     Indication: RENAL CELL CARCINOMA
     Dosage: 5 MG, QD
     Route: 048
     Dates: start: 20190626, end: 20190708

REACTIONS (3)
  - Nausea [Unknown]
  - Hypotension [Recovered/Resolved]
  - Diarrhoea [Unknown]

NARRATIVE: CASE EVENT DATE: 20190706
